FAERS Safety Report 19438829 (Version 1)
Quarter: 2021Q2

REPORT INFORMATION
  Report Type: Spontaneous
  Country: DE (occurrence: DE)
  Receive Date: 20210618
  Receipt Date: 20210618
  Transmission Date: 20210717
  Serious: Yes (Other)
  Sender: FDA-Public Use
  Company Number: DE-B.I. PHARMACEUTICALS,INC./RIDGEFIELD-2021-BI-108536

PATIENT
  Age: 48 Year
  Sex: Male

DRUGS (7)
  1. VARGATEF [Suspect]
     Active Substance: NINTEDANIB
     Indication: ADENOCARCINOMA
     Dosage: 1?0?1, D2?D21, Q22
     Dates: start: 201907
  2. VARGATEF [Suspect]
     Active Substance: NINTEDANIB
     Dosage: 1?01, D2?D21, Q22
     Dates: start: 201909
  3. DOCETAXEL. [Suspect]
     Active Substance: DOCETAXEL
     Indication: ADENOCARCINOMA
     Dosage: D1
     Dates: start: 201907
  4. DOCETAXEL. [Suspect]
     Active Substance: DOCETAXEL
     Dates: start: 201909
  5. NEULASTA [Concomitant]
     Active Substance: PEGFILGRASTIM
     Indication: PRODUCT USED FOR UNKNOWN INDICATION
     Dosage: D2
  6. PEMBROLIZUMAB. [Suspect]
     Active Substance: PEMBROLIZUMAB
     Dates: start: 201901, end: 201902
  7. PEMBROLIZUMAB. [Suspect]
     Active Substance: PEMBROLIZUMAB
     Indication: ADENOCARCINOMA
     Dates: start: 201810, end: 201812

REACTIONS (3)
  - Metastases to central nervous system [Unknown]
  - Neutropenia [Unknown]
  - Influenza [Unknown]

NARRATIVE: CASE EVENT DATE: 201907
